FAERS Safety Report 19489268 (Version 2)
Quarter: 2021Q3

REPORT INFORMATION
  Report Type: Spontaneous
  Country: US (occurrence: US)
  Receive Date: 20210703
  Receipt Date: 20210712
  Transmission Date: 20211014
  Serious: No
  Sender: FDA-Public Use
  Company Number: NVSC2021US145229

PATIENT
  Age: 59 Year
  Sex: Male

DRUGS (1)
  1. VOLTAREN [Suspect]
     Active Substance: DICLOFENAC SODIUM
     Indication: ARTHRITIS
     Dosage: UNK
     Route: 065
     Dates: start: 20210619, end: 20210621

REACTIONS (6)
  - Abdominal pain upper [Unknown]
  - Malaise [Unknown]
  - Feeling abnormal [Unknown]
  - Product use issue [Unknown]
  - Condition aggravated [Unknown]
  - Therapeutic product effect incomplete [Unknown]

NARRATIVE: CASE EVENT DATE: 20210622
